FAERS Safety Report 4414787-5 (Version None)
Quarter: 2004Q3

REPORT INFORMATION
  Report Type: 
  Country: None (occurrence: None)
  Receive Date: 20040804
  Receipt Date: 20031002
  Transmission Date: 20050211
  Serious: No
  Sender: FDA-Public Use
  Company Number: US-BRISTOL-MYERS SQUIBB COMPANY-12400354

PATIENT
  Age: 69 Year
  Sex: Male
  Weight: 101 kg

DRUGS (8)
  1. GLUCOVANCE [Suspect]
     Indication: DIABETES MELLITUS
     Route: 048
  2. LUPRON [Concomitant]
     Dates: start: 20030701
  3. COUMADIN [Concomitant]
  4. LANOXIN [Concomitant]
  5. LASIX [Concomitant]
  6. ZYLOPRIM [Concomitant]
  7. VITAMIN E [Concomitant]
  8. SELENIUM TRACE METAL ADDITIVE [Concomitant]

REACTIONS (1)
  - BLOOD GLUCOSE INCREASED [None]
